FAERS Safety Report 15318330 (Version 1)
Quarter: 2018Q3

REPORT INFORMATION
  Report Type: Spontaneous
  Country: US (occurrence: US)
  Receive Date: 20180817
  Receipt Date: 20180817
  Transmission Date: 20181010
  Serious: No
  Sender: FDA-Public Use
  Company Number: None

PATIENT
  Age: 58 Year
  Sex: Female
  Weight: 70.65 kg

DRUGS (6)
  1. ZYRTEC [Concomitant]
     Active Substance: CETIRIZINE HYDROCHLORIDE
  2. FLUTICASONE. [Concomitant]
     Active Substance: FLUTICASONE
  3. LEVOTHYROXINE. [Suspect]
     Active Substance: LEVOTHYROXINE
     Indication: HYPOTHYROIDISM
     Dosage: ?          OTHER STRENGTH:MCG;QUANTITY:30 TABLET(S);?
     Route: 048
     Dates: start: 20180405, end: 20180726
  4. PROAIR HFA [Concomitant]
     Active Substance: ALBUTEROL SULFATE
  5. LATANOPROST. [Concomitant]
     Active Substance: LATANOPROST
  6. FLOVENT [Concomitant]
     Active Substance: FLUTICASONE PROPIONATE

REACTIONS (1)
  - Throat irritation [None]

NARRATIVE: CASE EVENT DATE: 20180724
